FAERS Safety Report 12804068 (Version 2)
Quarter: 2016Q4

REPORT INFORMATION
  Report Type: Spontaneous
  Country: AR (occurrence: AR)
  Receive Date: 20161003
  Receipt Date: 20161018
  Transmission Date: 20170207
  Serious: Yes (Death)
  Sender: FDA-Public Use
  Company Number: PHHY2016AR135421

PATIENT
  Age: 67 Year
  Sex: Male

DRUGS (2)
  1. DABRAFENIB [Suspect]
     Active Substance: DABRAFENIB
     Indication: METASTATIC MALIGNANT MELANOMA
     Dosage: UNK
     Route: 065
     Dates: start: 20160802
  2. MEKINIST [Suspect]
     Active Substance: TRAMETINIB DIMETHYL SULFOXIDE
     Indication: METASTATIC MALIGNANT MELANOMA
     Dosage: UNK
     Route: 065
     Dates: start: 20160810

REACTIONS (8)
  - Pneumonitis [Recovered/Resolved]
  - Obstructive airways disorder [Recovered/Resolved]
  - Cardio-respiratory arrest [Fatal]
  - Hypotension [Fatal]
  - Lymphadenopathy [Unknown]
  - Soft tissue injury [Unknown]
  - Malaise [Fatal]
  - Palpitations [Fatal]

NARRATIVE: CASE EVENT DATE: 20160815
